FAERS Safety Report 18608547 (Version 1)
Quarter: 2020Q4

REPORT INFORMATION
  Report Type: Other
  Country: US (occurrence: US)
  Receive Date: 20201213
  Receipt Date: 20201213
  Transmission Date: 20210114
  Serious: Yes (Hospitalization, Other)
  Sender: FDA-Public Use
  Company Number: US-ROCHE-2345197

PATIENT
  Sex: Female
  Weight: 93.07 kg

DRUGS (11)
  1. ESBRIET [Suspect]
     Active Substance: PIRFENIDONE
     Indication: IDIOPATHIC PULMONARY FIBROSIS
     Dosage: 3 TABLETS THREE TIMES A DAY ;ONGOING: NO
     Route: 048
     Dates: start: 201708, end: 201903
  2. ESBRIET [Suspect]
     Active Substance: PIRFENIDONE
     Dosage: ONGOING: NO
     Route: 048
     Dates: start: 201710, end: 201903
  3. ESBRIET [Suspect]
     Active Substance: PIRFENIDONE
     Indication: PRODUCT USED FOR UNKNOWN INDICATION
     Dosage: ONGOING: UNKNOWN
     Route: 048
  4. PREDNISONE. [Concomitant]
     Active Substance: PREDNISONE
     Route: 048
  5. MONTELUKAST SODIUM. [Concomitant]
     Active Substance: MONTELUKAST SODIUM
     Route: 048
  6. PANTOPRAZOLE SODIUM. [Concomitant]
     Active Substance: PANTOPRAZOLE SODIUM
     Dosage: DELAYED RELEASED
     Route: 048
  7. ESBRIET [Suspect]
     Active Substance: PIRFENIDONE
     Dosage: BACK TO THREE TABLETS THREE TIMES A DAY ;ONGOING: YES
     Route: 048
  8. ERGOCALCIFEROL. [Concomitant]
     Active Substance: ERGOCALCIFEROL
     Dosage: 50000 UNIT
     Route: 048
  9. ESBRIET [Suspect]
     Active Substance: PIRFENIDONE
     Dosage: TAKE 3 TABLET(S) BY MOUTH 3 TIMES A DAY, ONGOING: UNKNOWN
     Route: 048
  10. ESBRIET [Suspect]
     Active Substance: PIRFENIDONE
     Dosage: 2 TABLETS THREE TIMES A DAY ;ONGOING: NO
     Route: 048
  11. ZITHROMAX [Concomitant]
     Active Substance: AZITHROMYCIN DIHYDRATE
     Route: 048

REACTIONS (7)
  - Pneumonia [Unknown]
  - Hepatitis C [Recovered/Resolved]
  - Malaise [Not Recovered/Not Resolved]
  - Dysphonia [Not Recovered/Not Resolved]
  - Nasopharyngitis [Not Recovered/Not Resolved]
  - Influenza [Unknown]
  - Dyspepsia [Unknown]

NARRATIVE: CASE EVENT DATE: 2019
